FAERS Safety Report 4878032-9 (Version None)
Quarter: 2006Q1

REPORT INFORMATION
  Report Type: 
  Country: None (occurrence: None)
  Receive Date: 20060110
  Receipt Date: 20051229
  Transmission Date: 20060701
  Serious: Yes (Hospitalization)
  Sender: FDA-Public Use
  Company Number: 2006000479

PATIENT
  Age: 68 Year
  Sex: Female

DRUGS (1)
  1. LIPITOR [Suspect]
     Indication: BLOOD CHOLESTEROL INCREASED
     Dosage: 10 MG (10 MG, 1 IN 1 D), ORAL
     Route: 048
     Dates: start: 20000101, end: 20051201

REACTIONS (11)
  - ASTHENIA [None]
  - BRONCHITIS [None]
  - BURNING SENSATION [None]
  - ELECTROLYTE IMBALANCE [None]
  - ERYTHEMA [None]
  - FEELING ABNORMAL [None]
  - JOINT SWELLING [None]
  - MOBILITY DECREASED [None]
  - OEDEMA [None]
  - PLEURISY [None]
  - PNEUMONIA [None]
